FAERS Safety Report 6193443-X (Version None)
Quarter: 2009Q2

REPORT INFORMATION
  Report Type: 
  Country: None (occurrence: None)
  Receive Date: 20090518
  Receipt Date: 20090225
  Transmission Date: 20091009
  Serious: No
  Sender: FDA-Public Use
  Company Number: US-ABBOTT-09P-163-0559916-00

PATIENT
  Sex: Female
  Weight: 120.31 kg

DRUGS (5)
  1. AZMACORT [Suspect]
     Indication: ASTHMA
     Dosage: 4 SPRAYS DAILY
     Route: 048
     Dates: start: 19890101
  2. TAZTIA XT [Concomitant]
     Indication: HYPERTENSION
  3. COZAAR [Concomitant]
     Indication: DRUG USE FOR UNKNOWN INDICATION
  4. DEMADEX [Concomitant]
     Indication: DRUG USE FOR UNKNOWN INDICATION
  5. UNKNOWN PAIN MEDICATIONS [Concomitant]
     Indication: PAIN

REACTIONS (3)
  - COUGH [None]
  - POSTNASAL DRIP [None]
  - RHINORRHOEA [None]
